FAERS Safety Report 15383359 (Version 1)
Quarter: 2018Q3

REPORT INFORMATION
  Report Type: Spontaneous
  Country: US (occurrence: US)
  Receive Date: 20180913
  Receipt Date: 20180913
  Transmission Date: 20181010
  Serious: Yes (Hospitalization, Other)
  Sender: FDA-Public Use
  Company Number: PHHY2018US093140

PATIENT
  Age: 48 Year
  Sex: Male

DRUGS (6)
  1. BACLOFEN. [Suspect]
     Active Substance: BACLOFEN
     Indication: MYOCLONUS
     Dosage: 75 UG, UNK
     Route: 037
  2. DIVALPROEX SODIUM. [Suspect]
     Active Substance: DIVALPROEX SODIUM
     Indication: MYOCLONUS
     Route: 065
  3. CLONAZEPAM. [Suspect]
     Active Substance: CLONAZEPAM
     Dosage: 0.5 MG, TID
     Route: 065
  4. LEVETIRACETAM. [Suspect]
     Active Substance: LEVETIRACETAM
     Indication: MYOCLONUS
     Dosage: 2000 MG, BID
     Route: 065
  5. LEVETIRACETAM. [Suspect]
     Active Substance: LEVETIRACETAM
     Dosage: 1000 MG, BID
     Route: 065
  6. CLONAZEPAM. [Suspect]
     Active Substance: CLONAZEPAM
     Indication: MYOCLONUS
     Dosage: 1.5 MG, TID
     Route: 065

REACTIONS (6)
  - Renal impairment [Unknown]
  - Cognitive disorder [Unknown]
  - Myoclonus [Recovered/Resolved]
  - Confusional state [Unknown]
  - Off label use [Unknown]
  - Cardiac failure congestive [Recovered/Resolved]
